FAERS Safety Report 8048157-8 (Version None)
Quarter: 2012Q1

REPORT INFORMATION
  Report Type: 
  Country: None (occurrence: None)
  Receive Date: 20120113
  Receipt Date: 20120113
  Transmission Date: 20120608
  Serious: No
  Sender: FDA-Public Use
  Company Number: None

PATIENT

DRUGS (1)
  1. MIDORINE 10 MG [Suspect]
     Dosage: 10 MG

REACTIONS (2)
  - SCREAMING [None]
  - HALLUCINATION, VISUAL [None]
